FAERS Safety Report 4783572-7 (Version None)
Quarter: 2005Q3

REPORT INFORMATION
  Report Type: 
  Country: None (occurrence: None)
  Receive Date: 20050929
  Receipt Date: 20050918
  Transmission Date: 20060218
  Serious: Yes (Other)
  Sender: FDA-Public Use
  Company Number: BR-JNJFOC-20050905239

PATIENT
  Age: 24 Year
  Sex: Female

DRUGS (1)
  1. TYLEX [Suspect]
     Indication: DRUG USE FOR UNKNOWN INDICATION
     Route: 048

REACTIONS (4)
  - MYALGIA [None]
  - OCULAR DISCOMFORT [None]
  - OVERDOSE [None]
  - SUICIDE ATTEMPT [None]
